FAERS Safety Report 9625982 (Version 2)
Quarter: 2013Q4

REPORT INFORMATION
  Report Type: Spontaneous
  Country: US (occurrence: US)
  Receive Date: 20131016
  Receipt Date: 20131016
  Transmission Date: 20140711
  Serious: No
  Sender: FDA-Public Use
  Company Number: US-BAXTER-2012BAX019333

PATIENT
  Age: 44 Year
  Sex: Male

DRUGS (1)
  1. DIANEAL LOW CALCIUM (ULTRABAG) [Suspect]
     Indication: PERITONEAL DIALYSIS
     Dosage: 8 LITERS
     Route: 033
     Dates: start: 20120713

REACTIONS (1)
  - Laceration [Recovered/Resolved]
